FAERS Safety Report 17307273 (Version 1)
Quarter: 2020Q1

REPORT INFORMATION
  Report Type: Spontaneous
  Country: US (occurrence: US)
  Receive Date: 20200122
  Receipt Date: 20200122
  Transmission Date: 20200409
  Serious: Yes (Other)
  Sender: FDA-Public Use
  Company Number: None

PATIENT
  Sex: Male

DRUGS (2)
  1. BRIMONIDINE [Suspect]
     Active Substance: BRIMONIDINE TARTRATE
  2. TRAVATAN Z [Suspect]
     Active Substance: TRAVOPROST

REACTIONS (3)
  - Headache [None]
  - Therapy non-responder [None]
  - Migraine [None]
